FAERS Safety Report 9953616 (Version 1)
Quarter: 2014Q1

REPORT INFORMATION
  Report Type: Report from Study
  Country: US (occurrence: US)
  Receive Date: 20140304
  Receipt Date: 20140304
  Transmission Date: 20141002
  Serious: No
  Sender: FDA-Public Use
  Company Number: US-ABBVIE-13P-163-1076043-00

PATIENT
  Age: 60 Year
  Sex: Female

DRUGS (6)
  1. HUMIRA [Suspect]
     Indication: PSORIASIS
     Dates: start: 201210
  2. AMLODIPINE [Concomitant]
     Indication: BLOOD PRESSURE
     Dosage: 5 MG DAILY
     Route: 048
  3. CALCITRIOL [Concomitant]
     Indication: PRODUCT USED FOR UNKNOWN INDICATION
  4. VEBETA [Concomitant]
     Indication: BLOOD PRESSURE
     Dosage: 0.5 MG DAILY
     Route: 048
  5. AMBIEN [Concomitant]
     Indication: INSOMNIA
     Dosage: AS NEEDED
     Route: 048
  6. COUMADIN [Concomitant]
     Indication: PRODUCT USED FOR UNKNOWN INDICATION
     Dates: end: 201304

REACTIONS (2)
  - Skin reaction [Not Recovered/Not Resolved]
  - Rash papular [Not Recovered/Not Resolved]
